FAERS Safety Report 16559173 (Version 1)
Quarter: 2019Q3

REPORT INFORMATION
  Report Type: Spontaneous
  Country: US (occurrence: US)
  Receive Date: 20190530
  Receipt Date: 20190530
  Transmission Date: 20191004
  Serious: Yes (Other)
  Sender: FDA-Public Use
  Company Number: None

PATIENT
  Age: 28 Year
  Sex: Female
  Weight: 69.4 kg

DRUGS (1)
  1. BUPRENORPHINE-NALOXONE 8-2 MG FILM [Suspect]
     Active Substance: BUPRENORPHINE HYDROCHLORIDE\NALOXONE HYDROCHLORIDE
     Indication: DRUG DEPENDENCE
     Dosage: 8-2 MG FILM, 2 FILMS DAILY SL
     Route: 060
     Dates: start: 20190513, end: 20190525

REACTIONS (1)
  - Migraine [None]

NARRATIVE: CASE EVENT DATE: 20190525
